FAERS Safety Report 25576106 (Version 4)
Quarter: 2025Q3

REPORT INFORMATION
  Report Type: Spontaneous
  Country: US (occurrence: US)
  Receive Date: 20250718
  Receipt Date: 20250919
  Transmission Date: 20251021
  Serious: No
  Sender: BRISTOL-MYERS SQUIBB COMPANY
  Company Number: US-BRISTOL-MYERS SQUIBB COMPANY-2025-100919

PATIENT
  Age: 58 Year
  Sex: Female

DRUGS (3)
  1. SPRYCEL [Interacting]
     Active Substance: DASATINIB
     Indication: Chronic myeloid leukaemia
  2. METHIMAZOLE [Interacting]
     Active Substance: METHIMAZOLE
     Indication: Product used for unknown indication
  3. MIRTAZAPINE [Concomitant]
     Active Substance: MIRTAZAPINE
     Indication: Product used for unknown indication

REACTIONS (6)
  - Fatigue [Unknown]
  - Headache [Unknown]
  - Labelled drug-drug interaction medication error [Unknown]
  - Nightmare [Unknown]
  - Sleep disorder [Recovered/Resolved]
  - Alopecia [Unknown]

NARRATIVE: CASE EVENT DATE: 20250717
